FAERS Safety Report 9272313 (Version 1)
Quarter: 2013Q2

REPORT INFORMATION
  Report Type: Spontaneous
  Country: US (occurrence: US)
  Receive Date: 20130506
  Receipt Date: 20130506
  Transmission Date: 20140414
  Serious: No
  Sender: FDA-Public Use
  Company Number: US-ASTRAZENECA-2012SE87624

PATIENT
  Age: 61 Year
  Sex: Male

DRUGS (5)
  1. PRILOSEC OTC [Suspect]
     Route: 048
     Dates: start: 20121021, end: 20121022
  2. IRON [Concomitant]
  3. POTASSIUM [Concomitant]
  4. DIURETICS [Concomitant]
  5. FOLIC ACID [Concomitant]

REACTIONS (3)
  - Gout [Unknown]
  - Condition aggravated [Unknown]
  - Incorrect dose administered [Unknown]
